FAERS Safety Report 4920800-9 (Version None)
Quarter: 2006Q1

REPORT INFORMATION
  Report Type: 
  Country: None (occurrence: None)
  Receive Date: 20060217
  Receipt Date: 20060201
  Transmission Date: 20060701
  Serious: Yes (Other)
  Sender: FDA-Public Use
  Company Number: DSA_27706_2006

PATIENT
  Age: 59 Year
  Sex: Female

DRUGS (16)
  1. ENALAPRIL MALEATE [Suspect]
     Dosage: DF
  2. ENALAPRIL MALEATE [Suspect]
     Dosage: 20 MG Q DAY
  3. ROFECOXIB [Concomitant]
  4. ATARAX [Concomitant]
  5. INDERAL [Concomitant]
  6. ACETAMINOPHEN W/ PROPOXYPHENE HCL [Concomitant]
  7. CALCIUM GLUCONATE [Concomitant]
  8. POTASSIUM [Concomitant]
  9. ATROVENT [Concomitant]
  10. ALBUTEROL [Concomitant]
  11. AZMACORT [Concomitant]
  12. LOMOTIL [Concomitant]
  13. AMITRIPTYLINE HYDROCHLORIDE [Concomitant]
  14. LIBRIUM [Concomitant]
  15. IMITREX [Concomitant]
  16. NORVASC [Concomitant]

REACTIONS (9)
  - BLOOD PRESSURE INCREASED [None]
  - BUNDLE BRANCH BLOCK LEFT [None]
  - CONSTIPATION [None]
  - DECREASED APPETITE [None]
  - DILATATION VENTRICULAR [None]
  - EJECTION FRACTION DECREASED [None]
  - MYOCARDIAL ISCHAEMIA [None]
  - TREMOR [None]
  - WEIGHT INCREASED [None]
